FAERS Safety Report 7821985-7 (Version None)
Quarter: 2011Q4

REPORT INFORMATION
  Report Type: 
  Country: None (occurrence: None)
  Receive Date: 20111018
  Receipt Date: 20100902
  Transmission Date: 20120403
  Serious: No
  Sender: FDA-Public Use
  Company Number: US-ASTRAZENECA-2010SE41502

PATIENT
  Sex: Male

DRUGS (2)
  1. SYMBICORT [Suspect]
     Route: 055
  2. ADVAIR DISKUS 100/50 [Concomitant]

REACTIONS (6)
  - GAIT DISTURBANCE [None]
  - DYSPNOEA [None]
  - DIZZINESS [None]
  - IMPAIRED DRIVING ABILITY [None]
  - HEADACHE [None]
  - WHEEZING [None]
